FAERS Safety Report 25157147 (Version 1)
Quarter: 2025Q2

REPORT INFORMATION
  Report Type: Spontaneous
  Country: TR (occurrence: TR)
  Receive Date: 20250403
  Receipt Date: 20250403
  Transmission Date: 20250717
  Serious: Yes (Other)
  Sender: ADMA BIOLOGICS
  Company Number: TR-ADMA BIOLOGICS INC.-TR-2025ADM000146

PATIENT

DRUGS (6)
  1. HUMAN IMMUNOGLOBULIN G [Suspect]
     Active Substance: HUMAN IMMUNOGLOBULIN G
     Indication: Thrombocytopenia
     Route: 042
  2. HUMAN IMMUNOGLOBULIN G [Suspect]
     Active Substance: HUMAN IMMUNOGLOBULIN G
     Route: 064
  3. METHYLPREDNISOLONE [Suspect]
     Active Substance: METHYLPREDNISOLONE
     Indication: Thrombocytopenia
     Dosage: 2 MG/KG, QD
     Route: 065
  4. METHYLPREDNISOLONE [Suspect]
     Active Substance: METHYLPREDNISOLONE
     Dosage: 30 MG/KG, QD
     Route: 065
  5. METHYLPREDNISOLONE [Suspect]
     Active Substance: METHYLPREDNISOLONE
     Dosage: 20 MG/KG, QD
     Route: 065
  6. METHYLPREDNISOLONE [Suspect]
     Active Substance: METHYLPREDNISOLONE
     Dosage: 24 MG, QD
     Route: 064

REACTIONS (4)
  - Intracranial haematoma [Recovered/Resolved]
  - Neonatal bacteraemia [Recovered/Resolved]
  - Foetal exposure during pregnancy [Unknown]
  - Off label use [Unknown]
